FAERS Safety Report 4565785-2 (Version None)
Quarter: 2005Q1

REPORT INFORMATION
  Report Type: 
  Country: None (occurrence: None)
  Receive Date: 20050128
  Receipt Date: 20050114
  Transmission Date: 20050727
  Serious: Yes (Death, Hospitalization, Other)
  Sender: FDA-Public Use
  Company Number: 2005-00169

PATIENT
  Age: 60 Year
  Sex: Male

DRUGS (2)
  1. FLUOROURACIL [Suspect]
     Indication: HEPATIC NEOPLASM MALIGNANT
     Dosage: 450 MG, DAILY Q2 WEEKS, INTRAVENOUS
     Route: 042
     Dates: start: 20000701, end: 20000701
  2. INTERFERON ALFA (INTERFERON ALFA) [Suspect]
     Indication: HEPATIC NEOPLASM MALIGNANT
     Dosage: 5 MILLION U, 3/WEEK, SUBCUTANEOUS
     Route: 058
     Dates: start: 20000701, end: 20000701

REACTIONS (5)
  - DEPRESSED LEVEL OF CONSCIOUSNESS [None]
  - DRUG INTERACTION POTENTIATION [None]
  - INTERSTITIAL LUNG DISEASE [None]
  - LUNG INFILTRATION [None]
  - RESPIRATORY FAILURE [None]
